FAERS Safety Report 12670993 (Version 1)
Quarter: 2016Q3

REPORT INFORMATION
  Report Type: Spontaneous
  Country: US (occurrence: None)
  Receive Date: 20160819
  Receipt Date: 20160819
  Transmission Date: 20161109
  Serious: Yes (Life-Threatening, Disabling)
  Sender: FDA-Public Use
  Company Number: None

PATIENT
  Age: 41 Year
  Sex: Male
  Weight: 77.11 kg

DRUGS (5)
  1. ALBUTEROL PROAIR [Concomitant]
  2. LORATIDINE [Concomitant]
     Active Substance: LORATADINE
  3. PREVACID [Concomitant]
     Active Substance: LANSOPRAZOLE
  4. SINGULAIR [Suspect]
     Active Substance: MONTELUKAST SODIUM
     Indication: ASTHMA
     Route: 048
     Dates: start: 20160814, end: 20160817
  5. DULERA [Concomitant]
     Active Substance: FORMOTEROL FUMARATE DIHYDRATE\MOMETASONE FUROATE

REACTIONS (6)
  - Tachyphrenia [None]
  - Insomnia [None]
  - Anxiety [None]
  - Aggression [None]
  - Suicidal ideation [None]
  - Social avoidant behaviour [None]

NARRATIVE: CASE EVENT DATE: 20160816
